FAERS Safety Report 18060701 (Version 1)
Quarter: 2020Q3

REPORT INFORMATION
  Report Type: Spontaneous
  Country: AU (occurrence: AU)
  Receive Date: 20200723
  Receipt Date: 20200723
  Transmission Date: 20201103
  Serious: Yes (Hospitalization)
  Sender: FDA-Public Use
  Company Number: AU-MYLANLABS-2020M1065886

PATIENT
  Age: 61 Year
  Sex: Male

DRUGS (2)
  1. ETANERCEPT [Suspect]
     Active Substance: ETANERCEPT
     Indication: RHEUMATOID ARTHRITIS
     Dosage: UNK
     Route: 058
  2. SULPHAMETHOXAZOLE/TRIMETHOPRIM [Suspect]
     Active Substance: SULFAMETHOXAZOLE\TRIMETHOPRIM
     Indication: ANTIBIOTIC THERAPY
     Dosage: UNK
     Route: 048

REACTIONS (14)
  - Skin hypopigmentation [Unknown]
  - Acute kidney injury [Unknown]
  - Pneumonia [Unknown]
  - Hyperlactacidaemia [Unknown]
  - Neutrophilia [Unknown]
  - Hypotension [Unknown]
  - Intervertebral discitis [Unknown]
  - Normocytic anaemia [Unknown]
  - Hypoxia [Unknown]
  - Osteomyelitis [Unknown]
  - Acinetobacter infection [Recovered/Resolved]
  - Burkholderia pseudomallei infection [Recovered/Resolved]
  - Fixed eruption [Unknown]
  - Leukocytosis [Unknown]
